FAERS Safety Report 20168537 (Version 1)
Quarter: 2021Q4

REPORT INFORMATION
  Report Type: Spontaneous
  Country: US (occurrence: US)
  Receive Date: 20211210
  Receipt Date: 20211210
  Transmission Date: 20220304
  Serious: Yes (Other)
  Sender: FDA-Public Use
  Company Number: US-Adare-2021-US-000107

PATIENT
  Age: 59 Year
  Sex: Female

DRUGS (2)
  1. PROPRANOLOL [Suspect]
     Active Substance: PROPRANOLOL HYDROCHLORIDE
     Indication: Hypertension
  2. RANITIDINE [Concomitant]
     Active Substance: RANITIDINE
     Indication: Hypertension

REACTIONS (2)
  - Renal failure [Unknown]
  - Gastric varices [Unknown]
